FAERS Safety Report 6638956-9 (Version None)
Quarter: 2010Q1

REPORT INFORMATION
  Report Type: 
  Country: None (occurrence: None)
  Receive Date: 20100316
  Receipt Date: 20100316
  Transmission Date: 20100710
  Serious: Yes (Hospitalization)
  Sender: FDA-Public Use
  Company Number: None

PATIENT
  Sex: Female
  Weight: 74.8435 kg

DRUGS (3)
  1. CISPLATIN [Suspect]
     Indication: BLADDER CANCER
     Dosage: 70MG/M2 Q3W IV DRIP
     Route: 041
  2. LAPATINIB [Suspect]
     Indication: BLADDER CANCER
     Dosage: 1000MG QD PO
     Route: 048
  3. GEMCITABIN [Concomitant]

REACTIONS (3)
  - HYPOPHAGIA [None]
  - NAUSEA [None]
  - VOMITING [None]
